FAERS Safety Report 8899073 (Version 1)
Quarter: 2012Q4

REPORT INFORMATION
  Report Type: 
  Country: US (occurrence: US)
  Receive Date: 20121108
  Receipt Date: 20121108
  Transmission Date: 20130627
  Serious: No
  Sender: FDA-Public Use
  Company Number: US-AMGEN-USASP2012025643

PATIENT
  Age: 38 Year
  Sex: Male
  Weight: 130.16 kg

DRUGS (5)
  1. ENBREL [Suspect]
     Indication: ANKYLOSING SPONDYLITIS
     Dosage: 50 mg, qwk
     Route: 058
  2. KLONOPIN [Concomitant]
     Dosage: 0.5 mg, UNK
     Route: 048
  3. PRILOSEC                           /00661201/ [Concomitant]
     Dosage: 10 mg, UNK
     Route: 048
  4. TYLENOL /00020001/ [Concomitant]
     Dosage: 650 mg, UNK
     Route: 048
  5. TRAMADOL HCL [Concomitant]
     Dosage: 150 mg, UNK
     Route: 048

REACTIONS (4)
  - Headache [Unknown]
  - Injection site reaction [Unknown]
  - Oral herpes [Unknown]
  - Nasopharyngitis [Unknown]
